FAERS Safety Report 7194088-5 (Version None)
Quarter: 2010Q4

REPORT INFORMATION
  Report Type: 
  Country: None (occurrence: None)
  Receive Date: 20101223
  Receipt Date: 20101220
  Transmission Date: 20110411
  Serious: Yes (Hospitalization)
  Sender: FDA-Public Use
  Company Number: US-US-EMD SERONO, INC.-7032743

PATIENT
  Sex: Male
  Weight: 93 kg

DRUGS (2)
  1. REBIF [Suspect]
     Indication: MULTIPLE SCLEROSIS
     Route: 058
     Dates: start: 20040819
  2. ADVIL [Concomitant]
     Indication: PAIN

REACTIONS (7)
  - FEELING ABNORMAL [None]
  - INFECTION IN AN IMMUNOCOMPROMISED HOST [None]
  - INJECTION SITE ERYTHEMA [None]
  - INJECTION SITE PAIN [None]
  - INJECTION SITE REACTION [None]
  - NON-HODGKIN'S LYMPHOMA [None]
  - PYREXIA [None]
